FAERS Safety Report 7953305-1 (Version None)
Quarter: 2011Q4

REPORT INFORMATION
  Report Type: 
  Country: None (occurrence: None)
  Receive Date: 20111202
  Receipt Date: 20111123
  Transmission Date: 20120403
  Serious: Yes (Other)
  Sender: FDA-Public Use
  Company Number: JP-BRISTOL-MYERS SQUIBB COMPANY-15570021

PATIENT
  Age: 30 Year
  Sex: Female

DRUGS (7)
  1. EFAVIRENZ [Concomitant]
     Indication: HIV INFECTION
     Route: 048
     Dates: start: 20100727, end: 20100809
  2. RITODRINE HCL [Concomitant]
     Dates: start: 20100621, end: 20100623
  3. EPZICOM [Suspect]
     Indication: HIV INFECTION
     Dosage: 1DF=1TABLET
     Route: 048
     Dates: start: 20091101, end: 20110208
  4. NORVIR [Suspect]
     Indication: HIV INFECTION
     Route: 048
     Dates: start: 20091101, end: 20091222
  5. KALETRA [Suspect]
     Indication: HIV INFECTION
     Dosage: INTERRUPTED ON  26JUL10.REST'D ON 10AUG10.2DF=4TABLETS
     Route: 048
     Dates: start: 20091223, end: 20100726
  6. REYATAZ [Suspect]
     Indication: HIV INFECTION
     Route: 048
     Dates: start: 20091101, end: 20091222
  7. RETROVIR [Suspect]
     Dosage: ALSO TAKEN AS CONMED RETOVIR: ORAL,29JUN10-10AUG10.
     Route: 042
     Dates: start: 20100629

REACTIONS (5)
  - ANAEMIA [None]
  - THREATENED LABOUR [None]
  - BLOOD TRIGLYCERIDES INCREASED [None]
  - PREGNANCY [None]
  - LIVE BIRTH [None]
